FAERS Safety Report 11746794 (Version 8)
Quarter: 2017Q2

REPORT INFORMATION
  Report Type: Spontaneous
  Country: US (occurrence: US)
  Receive Date: 20151117
  Receipt Date: 20170511
  Transmission Date: 20170829
  Serious: Yes (Hospitalization)
  Sender: FDA-Public Use
  Company Number: US-ACTELION PHARMACEUTICALS US, INC.-A-US2014-97188

PATIENT
  Age: 75 Year
  Sex: Female

DRUGS (18)
  1. TRACLEER [Suspect]
     Active Substance: BOSENTAN
     Indication: PULMONARY ARTERIAL HYPERTENSION
     Dosage: 62.5 MG, BID
     Route: 048
     Dates: start: 20131120
  2. VIBERZI [Concomitant]
     Active Substance: ELUXADOLINE
  3. TRAMADOL. [Concomitant]
     Active Substance: TRAMADOL
  4. LIDOCAINE. [Concomitant]
     Active Substance: LIDOCAINE
  5. LOMOTIL [Concomitant]
     Active Substance: ATROPINE SULFATE\DIPHENOXYLATE HYDROCHLORIDE
  6. FUROSEMIDE. [Concomitant]
     Active Substance: FUROSEMIDE
  7. COUMADIN [Concomitant]
     Active Substance: WARFARIN SODIUM
  8. POTASSIUM [Concomitant]
     Active Substance: POTASSIUM
  9. TYVASO [Concomitant]
     Active Substance: TREPROSTINIL
  10. TREPROSTINIL DIOLAMIN [Concomitant]
     Active Substance: TREPROSTINIL DIOLAMINE
  11. BYSTOLIC [Concomitant]
     Active Substance: NEBIVOLOL HYDROCHLORIDE
  12. SILDENAFIL. [Concomitant]
     Active Substance: SILDENAFIL
  13. CARTIA XT [Concomitant]
     Active Substance: DILTIAZEM HYDROCHLORIDE
  14. PERCOCET [Concomitant]
     Active Substance: ACETAMINOPHEN\OXYCODONE HYDROCHLORIDE
  15. CYCLOBENZAPRINE. [Concomitant]
     Active Substance: CYCLOBENZAPRINE
  16. HYDROCORTISONE. [Concomitant]
     Active Substance: HYDROCORTISONE
  17. DILTIAZEM CD [Concomitant]
     Active Substance: DILTIAZEM
  18. ORENITRAM [Concomitant]
     Active Substance: TREPROSTINIL

REACTIONS (13)
  - Dizziness [Unknown]
  - Fluid retention [Unknown]
  - Drug dose omission [Unknown]
  - Unevaluable event [Unknown]
  - Bronchitis [Recovered/Resolved]
  - Dyspnoea [Unknown]
  - Dysphonia [Unknown]
  - Oropharyngeal pain [Unknown]
  - Respiratory tract infection [Unknown]
  - Dyspnoea exertional [Recovering/Resolving]
  - Throat irritation [Unknown]
  - Oxygen saturation decreased [Unknown]
  - Chest discomfort [Unknown]
